FAERS Safety Report 10229413 (Version 1)
Quarter: 2014Q2

REPORT INFORMATION
  Report Type: Spontaneous
  Country: US (occurrence: DE)
  Receive Date: 20140611
  Receipt Date: 20140611
  Transmission Date: 20141212
  Serious: Yes (Hospitalization)
  Sender: FDA-Public Use
  Company Number: 2014SP003115

PATIENT
  Age: 12 Year
  Sex: Female
  Weight: 48.3 kg

DRUGS (2)
  1. METHOTREXATE [Suspect]
     Indication: PRODUCT USED FOR UNKNOWN INDICATION
     Route: 065
     Dates: start: 20110912
  2. ETANERCEPT [Suspect]
     Dates: start: 20120918, end: 20130217

REACTIONS (2)
  - Concomitant disease aggravated [Recovered/Resolved]
  - Knee deformity [Recovered/Resolved]
